FAERS Safety Report 23142646 (Version 2)
Quarter: 2023Q4

REPORT INFORMATION
  Report Type: Spontaneous
  Country: FR (occurrence: FR)
  Receive Date: 20231103
  Receipt Date: 20231114
  Transmission Date: 20240110
  Serious: Yes (Death)
  Sender: FDA-Public Use
  Company Number: FR-JNJFOC-20231074909

PATIENT
  Age: 72 Year
  Sex: Female
  Weight: 106 kg

DRUGS (5)
  1. TECVAYLI [Suspect]
     Active Substance: TECLISTAMAB-CQYV
     Indication: Plasma cell myeloma
     Dosage: DATE OF 1ST ADMINISTRATION OF TECLISTAMAB; 18-JUL-2023?DAY 1
     Route: 065
     Dates: start: 20230718
  2. TECVAYLI [Suspect]
     Active Substance: TECLISTAMAB-CQYV
     Dosage: D3 (20/07)
     Route: 065
     Dates: start: 20230720
  3. TECVAYLI [Suspect]
     Active Substance: TECLISTAMAB-CQYV
     Dosage: DAY 5?CYCLE 3 WEEK
     Route: 065
     Dates: start: 20230724
  4. TECVAYLI [Suspect]
     Active Substance: TECLISTAMAB-CQYV
     Dosage: 1 WEEK AFTER (31/07)
     Route: 065
     Dates: end: 20230731
  5. TOCILIZUMAB [Concomitant]
     Active Substance: TOCILIZUMAB
     Indication: Product used for unknown indication
     Route: 065
     Dates: start: 20230719

REACTIONS (1)
  - Infection [Fatal]
